FAERS Safety Report 9907150 (Version 2)
Quarter: 2014Q1

REPORT INFORMATION
  Report Type: Spontaneous
  Country: FR (occurrence: FR)
  Receive Date: 20140218
  Receipt Date: 20140318
  Transmission Date: 20141002
  Serious: Yes (Hospitalization)
  Sender: FDA-Public Use
  Company Number: FR-PFIZER INC-2014043694

PATIENT
  Age: 91 Year
  Sex: Female

DRUGS (8)
  1. RAMIPRIL [Suspect]
     Indication: ACUTE CORONARY SYNDROME
     Dosage: UNK
     Route: 048
     Dates: start: 201311, end: 20140107
  2. GLIMEPIRIDE [Suspect]
     Indication: TYPE 2 DIABETES MELLITUS
     Dosage: UNK
     Route: 048
     Dates: end: 20140107
  3. LASILIX [Suspect]
     Indication: ACUTE CORONARY SYNDROME
     Dosage: UNK
     Route: 048
     Dates: start: 201311, end: 20140107
  4. JANUVIA [Suspect]
     Indication: TYPE 2 DIABETES MELLITUS
     Dosage: UNK
     Route: 048
     Dates: end: 20140107
  5. CRESTOR [Suspect]
     Indication: HYPERCHOLESTEROLAEMIA
     Dosage: UNK
     Route: 048
     Dates: start: 201311, end: 20140107
  6. ZOLPIDEM [Concomitant]
     Dosage: UNK
     Dates: start: 201311
  7. DUOPLAVIN [Concomitant]
     Dosage: UNK
     Dates: start: 201311
  8. BISOPROLOL [Concomitant]
     Dosage: UNK
     Dates: start: 201311

REACTIONS (2)
  - Agranulocytosis [Recovered/Resolved]
  - Pyrexia [Recovered/Resolved]
